FAERS Safety Report 6066326-3 (Version None)
Quarter: 2009Q1

REPORT INFORMATION
  Report Type: 
  Country: None (occurrence: None)
  Receive Date: 20090205
  Receipt Date: 20090105
  Transmission Date: 20090719
  Serious: No
  Sender: FDA-Public Use
  Company Number: US-BAYER-200910265NA

PATIENT
  Age: 40 Year
  Sex: Female
  Weight: 53 kg

DRUGS (2)
  1. CLIMARA [Suspect]
     Indication: MENOPAUSAL SYMPTOMS
     Route: 062
     Dates: start: 20081101
  2. PROMETRIUM [Concomitant]
     Indication: HORMONE REPLACEMENT THERAPY
     Dates: start: 20081101

REACTIONS (3)
  - HEADACHE [None]
  - HYPOMENORRHOEA [None]
  - NAUSEA [None]
